FAERS Safety Report 9319135 (Version 2)
Quarter: 2013Q3

REPORT INFORMATION
  Report Type: Spontaneous
  Country: US (occurrence: None)
  Receive Date: 20130524
  Receipt Date: 20130703
  Transmission Date: 20140515
  Serious: Yes (Other)
  Sender: FDA-Public Use
  Company Number: ACO_36257_2013

PATIENT
  Age: 62 Year
  Sex: Male

DRUGS (9)
  1. AMPYRA [Suspect]
     Indication: MULTIPLE SCLEROSIS
     Route: 048
     Dates: start: 20130514
  2. AMPYRA [Suspect]
     Indication: NYSTAGMUS
     Route: 048
     Dates: start: 20130514
  3. LIPITOR (ATORVASTATIN CALCIUM) [Concomitant]
  4. CARVEDILOL (CARVEDILOL) [Concomitant]
  5. LISINOPRIL (LISINOPRIL) [Concomitant]
  6. ASPIRIN (ACETYLSALICYLIC ACID) [Concomitant]
  7. OXYCODONE AND ACETAMINOPHEN (OXYCODONE HYDROCHLORIDE, PARACETAMOL) [Concomitant]
  8. OMEGA 3 (FISH OIL) [Concomitant]
  9. PRILOSEC (OMEPRAZOLE MAGNESIUM) [Concomitant]

REACTIONS (3)
  - Dysphagia [None]
  - Dyspnoea [None]
  - Hypoaesthesia oral [None]
